FAERS Safety Report 12713042 (Version 23)
Quarter: 2024Q1

REPORT INFORMATION
  Report Type: Report from Study
  Country: CA (occurrence: CA)
  Receive Date: 20160902
  Receipt Date: 20240103
  Transmission Date: 20240410
  Serious: Yes (Hospitalization, Other)
  Sender: FDA-Public Use
  Company Number: CA-TAKEDA-2016TUS015016

PATIENT
  Sex: Female

DRUGS (12)
  1. VEDOLIZUMAB [Suspect]
     Active Substance: VEDOLIZUMAB
     Indication: Crohn^s disease
     Dosage: 300 MILLIGRAM
     Route: 042
     Dates: start: 20160405
  2. VEDOLIZUMAB [Suspect]
     Active Substance: VEDOLIZUMAB
     Dosage: 300 MILLIGRAM
     Route: 042
  3. VEDOLIZUMAB [Suspect]
     Active Substance: VEDOLIZUMAB
     Dosage: 300 MILLIGRAM
     Route: 042
  4. VEDOLIZUMAB [Suspect]
     Active Substance: VEDOLIZUMAB
     Dosage: 300 MILLIGRAM
     Route: 042
  5. VEDOLIZUMAB [Suspect]
     Active Substance: VEDOLIZUMAB
     Dosage: 300 MILLIGRAM
     Route: 042
  6. PREDNISONE [Suspect]
     Active Substance: PREDNISONE
     Indication: Product used for unknown indication
     Dosage: 40 MILLIGRAM
     Route: 065
     Dates: start: 201608
  7. SPIRIVA [Concomitant]
     Active Substance: TIOTROPIUM BROMIDE MONOHYDRATE
     Dosage: UNK
  8. VENTOLIN [Concomitant]
     Active Substance: ALBUTEROL SULFATE
     Dosage: UNK
  9. PREVACID [Concomitant]
     Active Substance: LANSOPRAZOLE
     Indication: Stoma site discomfort
     Dosage: UNK
  10. ALLOPURINOL [Concomitant]
     Active Substance: ALLOPURINOL
     Indication: Renal lithiasis prophylaxis
     Dosage: 300 MILLIGRAM
  11. MACRODANTIN [Concomitant]
     Active Substance: NITROFURANTOIN
     Indication: Cystitis
     Dosage: 100 MILLIGRAM
  12. ENTOCORT [Concomitant]
     Active Substance: BUDESONIDE
     Dosage: 6 MILLIGRAM, QD

REACTIONS (28)
  - Intestinal obstruction [Unknown]
  - Gastrointestinal stoma complication [Unknown]
  - Abscess [Not Recovered/Not Resolved]
  - Crohn^s disease [Not Recovered/Not Resolved]
  - Large intestinal ulcer [Unknown]
  - Rectal ulcer [Unknown]
  - Nephrolithiasis [Unknown]
  - Cardiac disorder [Unknown]
  - Oral discomfort [Not Recovered/Not Resolved]
  - Procedural nausea [Recovered/Resolved with Sequelae]
  - Decreased appetite [Unknown]
  - Infusion site pain [Unknown]
  - Hernia [Unknown]
  - Anxiety [Unknown]
  - Poor venous access [Unknown]
  - Oxygen saturation decreased [Unknown]
  - Weight fluctuation [Unknown]
  - Electrolyte imbalance [Not Recovered/Not Resolved]
  - Blood pressure decreased [Not Recovered/Not Resolved]
  - Post procedural infection [Unknown]
  - Dry mouth [Not Recovered/Not Resolved]
  - Blood creatine abnormal [Unknown]
  - Palpitations [Unknown]
  - Ear pain [Recovered/Resolved]
  - Heart rate increased [Unknown]
  - Blood pressure increased [Unknown]
  - Nausea [Unknown]
  - Oropharyngeal pain [Recovered/Resolved]

NARRATIVE: CASE EVENT DATE: 20160101
